FAERS Safety Report 15673071 (Version 1)
Quarter: 2018Q4

REPORT INFORMATION
  Report Type: Report from Study
  Country: US (occurrence: US)
  Receive Date: 20181129
  Receipt Date: 20181129
  Transmission Date: 20190205
  Serious: Yes (Death, Other)
  Sender: FDA-Public Use
  Company Number: US-PFIZER INC-2018278912

PATIENT
  Age: 58 Year
  Sex: Male

DRUGS (4)
  1. SUTENT [Suspect]
     Active Substance: SUNITINIB MALATE
     Indication: GASTROINTESTINAL STROMAL TUMOUR
     Dosage: 12.5 MG, 1X/DAY
     Route: 048
  2. SUTENT [Suspect]
     Active Substance: SUNITINIB MALATE
     Dosage: 12.5 MG, 2X/DAY
     Route: 048
     Dates: start: 20180609, end: 201807
  3. SUTENT [Suspect]
     Active Substance: SUNITINIB MALATE
     Dosage: 25 MG, DAILY (QD)
     Route: 048
     Dates: start: 20180609
  4. SUTENT [Suspect]
     Active Substance: SUNITINIB MALATE
     Dosage: 25 MG, DAILY
     Route: 048
     Dates: start: 201807, end: 20181114

REACTIONS (6)
  - Fatigue [Not Recovered/Not Resolved]
  - Anaemia [Not Recovered/Not Resolved]
  - Haemoglobin decreased [Unknown]
  - Rash pruritic [Recovered/Resolved]
  - Diarrhoea [Unknown]
  - Death [Fatal]

NARRATIVE: CASE EVENT DATE: 2018
